FAERS Safety Report 16717558 (Version 1)
Quarter: 2019Q3

REPORT INFORMATION
  Report Type: Spontaneous
  Country: US (occurrence: US)
  Receive Date: 20190819
  Receipt Date: 20190819
  Transmission Date: 20191005
  Serious: No
  Sender: FDA-Public Use
  Company Number: US-SA-2019SA227785

PATIENT
  Age: 19 Year
  Sex: Female

DRUGS (2)
  1. FABRAZYME [Suspect]
     Active Substance: AGALSIDASE BETA
     Indication: FABRY^S DISEASE
     Dosage: 35 MG, QOW
     Route: 041
     Dates: start: 20150113
  2. FABRAZYME [Suspect]
     Active Substance: AGALSIDASE BETA
     Dosage: 25 MG, QOW
     Route: 041
     Dates: start: 20150115

REACTIONS (2)
  - Product dose omission [Unknown]
  - Product use issue [Unknown]
